FAERS Safety Report 26059514 (Version 1)
Quarter: 2025Q4

REPORT INFORMATION
  Report Type: Spontaneous
  Country: US (occurrence: US)
  Receive Date: 20251118
  Receipt Date: 20251118
  Transmission Date: 20260118
  Serious: No
  Sender: ELI LILLY AND COMPANY
  Company Number: US-ELI_LILLY_AND_COMPANY-US202511011074

PATIENT
  Age: 31 Year
  Sex: Female

DRUGS (2)
  1. VERZENIO [Suspect]
     Active Substance: ABEMACICLIB
     Indication: Ovarian cancer
     Dosage: 50 MG, BID
     Route: 048
  2. VERZENIO [Suspect]
     Active Substance: ABEMACICLIB
     Dosage: UNK UNK, UNKNOWN
     Route: 048

REACTIONS (2)
  - Off label use [Unknown]
  - Neutropenia [Unknown]
